FAERS Safety Report 10155410 (Version 1)
Quarter: 2014Q2

REPORT INFORMATION
  Report Type: Spontaneous
  Country: US (occurrence: None)
  Receive Date: 20140415
  Receipt Date: 20140415
  Transmission Date: 20141212
  Serious: Yes (Other)
  Sender: FDA-Public Use
  Company Number: E2B_00001603

PATIENT
  Age: 59 Year
  Sex: Female

DRUGS (8)
  1. LEVOFLOXACIN [Suspect]
     Indication: PNEUMONIA
     Dosage: 750 MG (750 MG, 1 IN 1 D), PER ORAL
     Route: 048
     Dates: start: 20131217, end: 20131225
  2. VITAMIN D (UNKNOWN) [Concomitant]
  3. LEVOCETIRIZINE (LEVOCITIRIZE) (UNKNOWN) [Concomitant]
  4. DIZEPAM (UNKNOWN) [Concomitant]
  5. OXYCODONE (UNKNOWN) [Concomitant]
  6. OXYCOTIN (UNKNOWN) [Concomitant]
  7. KETOROLAC TROMETAMINE (TORADOL) (UNKNOWN) [Concomitant]
  8. DOCOSANOL (ABREVA) (UNKNOWN) [Concomitant]

REACTIONS (2)
  - Arthralgia [None]
  - Peripheral swelling [None]
